FAERS Safety Report 8827926 (Version 2)
Quarter: 2012Q4

REPORT INFORMATION
  Report Type: 
  Country: AU (occurrence: AU)
  Receive Date: 20121005
  Receipt Date: 20121015
  Transmission Date: 20130627
  Serious: Yes (Death)
  Sender: FDA-Public Use
  Company Number: AU-PFIZER INC-2012239362

PATIENT
  Age: 85 Year
  Sex: Female
  Weight: 53 kg

DRUGS (11)
  1. MORPHINE SULFATE [Suspect]
     Dosage: UNK
     Route: 048
  2. NORSPAN [Suspect]
     Indication: PAIN
     Dosage: UNK
     Route: 062
  3. PANADOL OSTEO [Suspect]
     Indication: PAIN
     Dosage: 5.3 g, daily
     Route: 048
     Dates: start: 20120430, end: 20120630
  4. COVERSYL [Concomitant]
     Dosage: UNK
  5. FEMARA [Concomitant]
     Dosage: UNK
  6. ISCOVER [Concomitant]
     Dosage: UNK
  7. LIPITOR [Concomitant]
     Dosage: UNK
  8. MEGAFOL [Concomitant]
     Dosage: UNK
  9. OSTELIN [Concomitant]
     Dosage: UNK
  10. SOMAC [Concomitant]
     Dosage: UNK
  11. PAROXETINE [Concomitant]
     Dosage: UNK

REACTIONS (5)
  - Death [Fatal]
  - Renal impairment [Fatal]
  - Liver function test abnormal [Fatal]
  - Drug ineffective [Fatal]
  - Abdominal discomfort [Unknown]
